FAERS Safety Report 23473737 (Version 3)
Quarter: 2024Q2

REPORT INFORMATION
  Report Type: Spontaneous
  Country: AT (occurrence: AT)
  Receive Date: 20240203
  Receipt Date: 20240413
  Transmission Date: 20240716
  Serious: Yes (Hospitalization, Other)
  Sender: FDA-Public Use
  Company Number: AT-JNJFOC-20240175332

PATIENT
  Sex: Male
  Weight: 104 kg

DRUGS (3)
  1. AMIVANTAMAB [Suspect]
     Active Substance: AMIVANTAMAB
     Indication: Non-small cell lung cancer metastatic
     Route: 042
     Dates: start: 20240123, end: 20240123
  2. AMIVANTAMAB [Suspect]
     Active Substance: AMIVANTAMAB
     Dosage: DAY 2
     Route: 042
     Dates: start: 20240124
  3. AMIVANTAMAB [Suspect]
     Active Substance: AMIVANTAMAB
     Route: 042
     Dates: start: 20240130

REACTIONS (6)
  - Bronchospasm [Recovered/Resolved]
  - Infusion related reaction [Recovering/Resolving]
  - Rash [Not Recovered/Not Resolved]
  - Pruritus [Unknown]
  - Acne [Unknown]
  - Paronychia [Unknown]

NARRATIVE: CASE EVENT DATE: 20240124
